FAERS Safety Report 5837518-0 (Version None)
Quarter: 2008Q3

REPORT INFORMATION
  Report Type: 
  Country: None (occurrence: None)
  Receive Date: 20080807
  Receipt Date: 20080729
  Transmission Date: 20090109
  Serious: Yes (Other)
  Sender: FDA-Public Use
  Company Number: US-PFIZER INC-2008052434

PATIENT
  Sex: Female
  Weight: 118 kg

DRUGS (3)
  1. CELEBREX [Suspect]
     Indication: OSTEOARTHRITIS
  2. CELEBREX [Suspect]
     Indication: PAIN
  3. ANTIHYPERTENSIVES [Concomitant]

REACTIONS (5)
  - DYSPNOEA [None]
  - MYASTHENIA GRAVIS [None]
  - SPEECH DISORDER [None]
  - SPINAL FUSION SURGERY [None]
  - SWELLING [None]
